FAERS Safety Report 11496172 (Version 2)
Quarter: 2015Q3

REPORT INFORMATION
  Report Type: Spontaneous
  Country: US (occurrence: US)
  Receive Date: 20150911
  Receipt Date: 20150915
  Transmission Date: 20151125
  Serious: Yes (Other)
  Sender: FDA-Public Use
  Company Number: US-JNJFOC-20150901389

PATIENT
  Sex: Male

DRUGS (3)
  1. BENADRYL [Suspect]
     Active Substance: DIPHENHYDRAMINE HYDROCHLORIDE
     Indication: MULTIPLE ALLERGIES
     Route: 048
  2. EPIDURAL ANESTHESIA [Suspect]
     Active Substance: UNSPECIFIED INGREDIENT
     Indication: BACK PAIN
     Route: 065
  3. EPIDURAL ANESTHESIA [Suspect]
     Active Substance: UNSPECIFIED INGREDIENT
     Indication: ARTHROPATHY
     Route: 065

REACTIONS (1)
  - Loss of consciousness [Recovered/Resolved]
